FAERS Safety Report 7821102-3 (Version None)
Quarter: 2011Q4

REPORT INFORMATION
  Report Type: 
  Country: None (occurrence: None)
  Receive Date: 20111018
  Receipt Date: 20111016
  Transmission Date: 20120403
  Serious: No
  Sender: FDA-Public Use
  Company Number: US-PFIZER INC-2011247308

PATIENT
  Sex: Male
  Weight: 19.955 kg

DRUGS (1)
  1. CHILDREN'S ADVIL COLD [Suspect]
     Indication: PYREXIA
     Dosage: UNK
     Route: 048
     Dates: start: 20111016

REACTIONS (5)
  - ERYTHEMA [None]
  - SWELLING FACE [None]
  - BLISTER [None]
  - SWELLING [None]
  - PRURITUS [None]
